FAERS Safety Report 16806155 (Version 1)
Quarter: 2019Q3

REPORT INFORMATION
  Report Type: Spontaneous
  Country: US (occurrence: US)
  Receive Date: 20190913
  Receipt Date: 20190913
  Transmission Date: 20191005
  Serious: No
  Sender: FDA-Public Use
  Company Number: US-BAUSCH-BL-2019-023208

PATIENT
  Age: 69 Year
  Sex: Male

DRUGS (2)
  1. DORZOLAMIDE HYDROCHLORIDE AND TIMOLOL MALEATE OPHTHALMIC SOLN 2%/0.5% [Suspect]
     Active Substance: DORZOLAMIDE HYDROCHLORIDE\TIMOLOL MALEATE
     Indication: GLAUCOMA
     Dosage: STARTED SOMETIME AT LEAST A YEAR AGO
     Route: 047
     Dates: end: 20190724
  2. ZIOPTAN [Concomitant]
     Active Substance: TAFLUPROST
     Indication: PRODUCT USED FOR UNKNOWN INDICATION
     Route: 047

REACTIONS (4)
  - Dacryostenosis acquired [Unknown]
  - Lacrimation increased [Recovering/Resolving]
  - Dysgeusia [Recovering/Resolving]
  - Product deposit [Unknown]

NARRATIVE: CASE EVENT DATE: 201907
